FAERS Safety Report 15771631 (Version 1)
Quarter: 2018Q4

REPORT INFORMATION
  Report Type: Report from Study
  Country: CA (occurrence: CA)
  Receive Date: 20181228
  Receipt Date: 20181228
  Transmission Date: 20190205
  Serious: Yes (Other)
  Sender: FDA-Public Use
  Company Number: CA-BRISTOL-MYERS SQUIBB COMPANY-BMS-2018-013090

PATIENT
  Sex: Male

DRUGS (1)
  1. ABATACEPT [Suspect]
     Active Substance: ABATACEPT
     Indication: RHEUMATOID ARTHRITIS
     Dosage: 125 MG, QWK
     Route: 058
     Dates: start: 20161205, end: 201807

REACTIONS (6)
  - Arthropathy [Unknown]
  - Swelling [Recovering/Resolving]
  - Limb discomfort [Unknown]
  - Erythema [Recovering/Resolving]
  - Feeling hot [Recovering/Resolving]
  - Scab [Recovering/Resolving]
